FAERS Safety Report 7578457-7 (Version None)
Quarter: 2011Q2

REPORT INFORMATION
  Report Type: 
  Country: None (occurrence: None)
  Receive Date: 20110622
  Receipt Date: 20110308
  Transmission Date: 20111010
  Serious: Yes (Other)
  Sender: FDA-Public Use
  Company Number: GB-1185315

PATIENT

DRUGS (1)
  1. TRAVATAN 0.004% OPHTHALMIC SOLUTION [Suspect]
     Dosage: OPHTHALMIC
     Route: 047

REACTIONS (1)
  - CYSTOID MACULAR OEDEMA [None]
